FAERS Safety Report 8790674 (Version 2)
Quarter: 2012Q4

REPORT INFORMATION
  Report Type: Spontaneous
  Country: US (occurrence: None)
  Receive Date: 20120830
  Receipt Date: 20120910
  Transmission Date: 20130627
  Serious: Yes (Hospitalization)
  Sender: FDA-Public Use
  Company Number: 2012033176

PATIENT
  Age: 36 Year
  Sex: Female
  Weight: 53 kg

DRUGS (1)
  1. PRIVIGEN (IMMUNE GLOBULIN INTRAVENOUS (HUMAN) 10% LIQUID) [Suspect]
     Indication: ANTIPHOSPHOLIPID SYNDROME
     Dosage: (over 5 hours)
     Route: 042
     Dates: start: 20120814, end: 20120815

REACTIONS (5)
  - Maternal exposure during pregnancy [None]
  - Pain [None]
  - Migraine [None]
  - Infusion related reaction [None]
  - Off label use [None]
